FAERS Safety Report 5395060-8 (Version None)
Quarter: 2007Q3

REPORT INFORMATION
  Report Type: 
  Country: None (occurrence: None)
  Receive Date: 20070724
  Receipt Date: 20070712
  Transmission Date: 20080115
  Serious: Yes (Life-Threatening, Other)
  Sender: FDA-Public Use
  Company Number: GB-JNJFOC-20060803967

PATIENT
  Age: 53 Year
  Sex: Female
  Weight: 66 kg

DRUGS (8)
  1. REMICADE [Suspect]
     Route: 042
  2. REMICADE [Suspect]
     Route: 042
  3. REMICADE [Suspect]
     Route: 042
  4. REMICADE [Suspect]
     Indication: PSORIASIS
     Route: 042
  5. ELLESTE DUET [Concomitant]
     Route: 065
  6. TINZAPARIN [Concomitant]
     Route: 042
  7. VANCOMYCIN [Concomitant]
     Route: 042
  8. VENLAFAXINE HCL [Concomitant]
     Route: 065

REACTIONS (2)
  - ANAPHYLACTIC REACTION [None]
  - INFUSION RELATED REACTION [None]
